FAERS Safety Report 20086473 (Version 2)
Quarter: 2021Q4

REPORT INFORMATION
  Report Type: Spontaneous
  Country: US (occurrence: US)
  Receive Date: 20211118
  Receipt Date: 20211125
  Transmission Date: 20220303
  Serious: Yes (Other)
  Sender: FDA-Public Use
  Company Number: US-AMGEN-USASP2021175466

PATIENT
  Age: 70 Year
  Sex: Female

DRUGS (2)
  1. PROLIA [Suspect]
     Active Substance: DENOSUMAB
     Indication: Osteoporosis postmenopausal
     Dosage: UNK
     Route: 065
     Dates: start: 2016, end: 2019
  2. CEFIXIME [Concomitant]
     Active Substance: CEFIXIME
     Dosage: UNK

REACTIONS (13)
  - Deafness [Not Recovered/Not Resolved]
  - Spinal fracture [Unknown]
  - Arrhythmia [Unknown]
  - Blood pressure fluctuation [Unknown]
  - Thyroid disorder [Unknown]
  - Cough [Recovering/Resolving]
  - Hypoaesthesia [Unknown]
  - Inflammation [Recovering/Resolving]
  - Premature menopause [Unknown]
  - Dizziness [Recovering/Resolving]
  - Headache [Recovering/Resolving]
  - Back pain [Unknown]
  - Constipation [Recovering/Resolving]

NARRATIVE: CASE EVENT DATE: 20200101
